FAERS Safety Report 4569761-5 (Version None)
Quarter: 2005Q1

REPORT INFORMATION
  Report Type: 
  Country: None (occurrence: None)
  Receive Date: 20050203
  Receipt Date: 20041018
  Transmission Date: 20050727
  Serious: Yes (Hospitalization)
  Sender: FDA-Public Use
  Company Number: JP-MERCK-0411USA01849

PATIENT
  Age: 70 Year
  Sex: Male
  Weight: 85 kg

DRUGS (5)
  1. COZAAR [Suspect]
     Indication: DIABETIC NEPHROPATHY
     Route: 048
     Dates: start: 20040412, end: 20041012
  2. COZAAR [Suspect]
     Indication: HYPERTENSION
     Route: 048
     Dates: start: 20040412, end: 20041012
  3. CYANOCOBALAMIN [Concomitant]
     Indication: DIABETES MELLITUS
     Route: 048
  4. KINEDAK [Concomitant]
     Indication: DIABETIC NEUROPATHY
     Route: 048
     Dates: start: 20030801, end: 20041222
  5. HIBON [Concomitant]
     Route: 048
     Dates: start: 20040602, end: 20040616

REACTIONS (1)
  - LIVER DISORDER [None]
